FAERS Safety Report 25711547 (Version 1)
Quarter: 2025Q3

REPORT INFORMATION
  Report Type: Spontaneous
  Country: EU (occurrence: EU)
  Receive Date: 20250821
  Receipt Date: 20250821
  Transmission Date: 20251020
  Serious: Yes (Death)
  Sender: AMGEN
  Company Number: EU-AMGEN-ESPSP2025162528

PATIENT

DRUGS (2)
  1. BEVACIZUMAB [Suspect]
     Active Substance: BEVACIZUMAB
     Indication: Hepatocellular carcinoma
     Route: 065
  2. ATEZOLIZUMAB [Concomitant]
     Active Substance: ATEZOLIZUMAB
     Indication: Hepatocellular carcinoma
     Route: 065

REACTIONS (8)
  - Death [Fatal]
  - Hepatocellular carcinoma [Fatal]
  - Toxicity to various agents [Fatal]
  - Liver disorder [Fatal]
  - Unevaluable event [Fatal]
  - Therapy partial responder [Unknown]
  - Off label use [Unknown]
  - Therapy cessation [Unknown]
